FAERS Safety Report 6130430-1 (Version None)
Quarter: 2009Q1

REPORT INFORMATION
  Report Type: 
  Country: None (occurrence: None)
  Receive Date: 20090323
  Receipt Date: 20090310
  Transmission Date: 20090719
  Serious: Yes (Hospitalization, Other)
  Sender: FDA-Public Use
  Company Number: A-US2008-21379

PATIENT
  Age: 22 Year
  Sex: Female
  Weight: 29.4 kg

DRUGS (8)
  1. TRACLEER [Suspect]
     Indication: PULMONARY ARTERIAL HYPERTENSION
     Dosage: 62.5 MG, BID, ORAL; 31.25 MG, BID, ORAL
     Route: 048
     Dates: end: 20090201
  2. TRACLEER [Suspect]
     Indication: PULMONARY ARTERIAL HYPERTENSION
     Dosage: 62.5 MG, BID, ORAL; 31.25 MG, BID, ORAL
     Route: 048
     Dates: start: 20080601
  3. SPIRONOLACTONE [Concomitant]
  4. REVATIO [Concomitant]
  5. POTASSIUM CHLORIDE [Concomitant]
  6. ASPIRIN [Concomitant]
  7. LASIX [Concomitant]
  8. DIURIL (CHLOROTHIAZIDE) [Concomitant]

REACTIONS (8)
  - CARDIAC FAILURE CONGESTIVE [None]
  - DEHYDRATION [None]
  - HEPATIC CONGESTION [None]
  - LIVER FUNCTION TEST ABNORMAL [None]
  - METABOLIC ALKALOSIS [None]
  - PRURITUS GENERALISED [None]
  - RASH GENERALISED [None]
  - TRANSAMINASES INCREASED [None]
